FAERS Safety Report 7772227-2 (Version None)
Quarter: 2011Q3

REPORT INFORMATION
  Report Type: 
  Country: None (occurrence: None)
  Receive Date: 20110922
  Receipt Date: 20100824
  Transmission Date: 20111222
  Serious: No
  Sender: FDA-Public Use
  Company Number: US-ASTRAZENECA-2007UW25210

PATIENT
  Age: 33 Year
  Sex: Male
  Weight: 80.7 kg

DRUGS (13)
  1. HALDOL [Concomitant]
  2. SEROQUEL [Suspect]
     Dosage: 300 TO 900 MG AT NIGHT
     Route: 048
     Dates: start: 20050317
  3. SEROQUEL [Suspect]
     Indication: SCHIZOPHRENIA
     Dosage: 300 MG TO 1200 MG
     Route: 048
     Dates: start: 20000601
  4. SEROQUEL [Suspect]
     Dosage: 300 TO 900 MG AT NIGHT
     Route: 048
     Dates: start: 20050317
  5. LIPITOR [Concomitant]
     Route: 048
     Dates: start: 20070620
  6. ZYPREXA [Concomitant]
     Indication: SCHIZOPHRENIA
  7. ZYPREXA [Concomitant]
     Indication: INSOMNIA
  8. SEROQUEL [Suspect]
     Indication: INSOMNIA
     Dosage: 300 MG TO 1200 MG
     Route: 048
     Dates: start: 20000601
  9. SEROQUEL [Suspect]
     Dosage: 300 MG TO 1200 MG
     Route: 048
     Dates: start: 20020101
  10. PROLIXIN [Concomitant]
     Dosage: 2.5 CC ONCE IN TWO WEEKS
     Route: 030
     Dates: start: 20020131, end: 20071214
  11. CRESTOR [Concomitant]
     Route: 048
     Dates: start: 20061214
  12. COGENTIN [Concomitant]
     Route: 048
     Dates: start: 20020131, end: 20071214
  13. SEROQUEL [Suspect]
     Dosage: 300 MG TO 1200 MG
     Route: 048
     Dates: start: 20020101

REACTIONS (5)
  - TYPE 2 DIABETES MELLITUS [None]
  - DIABETES MELLITUS [None]
  - GLYCOSURIA [None]
  - HYPERGLYCAEMIA [None]
  - DIABETIC COMPLICATION [None]
